FAERS Safety Report 19058776 (Version 1)
Quarter: 2021Q1

REPORT INFORMATION
  Report Type: Spontaneous
  Country: JP (occurrence: JP)
  Receive Date: 20210325
  Receipt Date: 20210325
  Transmission Date: 20210420
  Serious: Yes (Hospitalization)
  Sender: FDA-Public Use
  Company Number: JP-BRISTOL-MYERS SQUIBB COMPANY-BMS-2021-010108

PATIENT
  Age: 53 Year
  Sex: Male
  Weight: 77 kg

DRUGS (6)
  1. LOXOPROFEN [Concomitant]
     Active Substance: LOXOPROFEN
     Indication: HEAD AND NECK CANCER
     Dosage: 60 MILLIGRAM, QD
     Route: 048
     Dates: start: 20191115
  2. CALONAL [Concomitant]
     Active Substance: ACETAMINOPHEN
     Indication: HEAD AND NECK CANCER
     Dosage: 900 MILLIGRAM, Q6H
     Route: 048
     Dates: start: 20200828, end: 20210103
  3. OPDIVO [Suspect]
     Active Substance: NIVOLUMAB
     Indication: HEAD AND NECK CANCER
     Dosage: 240 MILLIGRAM, Q2WK
     Route: 041
     Dates: start: 20201014, end: 20201125
  4. OPDIVO [Suspect]
     Active Substance: NIVOLUMAB
     Dosage: 480 MILLIGRAM, Q4WK
     Route: 041
     Dates: start: 20201209, end: 20201209
  5. AMLODIPINE [Concomitant]
     Active Substance: AMLODIPINE BESYLATE
     Indication: HEAD AND NECK CANCER
     Dosage: 2.5 MILLIGRAM, QD
     Route: 048
  6. OPDIVO [Suspect]
     Active Substance: NIVOLUMAB
     Dosage: 480 MILLIGRAM, Q4WK
     Route: 041
     Dates: start: 20210217, end: 20210317

REACTIONS (7)
  - Pyrexia [Recovering/Resolving]
  - Eczema [Recovering/Resolving]
  - Decreased appetite [Recovered/Resolved]
  - Sinus tachycardia [Recovered/Resolved]
  - Malaise [Recovering/Resolving]
  - Nausea [Unknown]
  - Thyroiditis [Recovering/Resolving]

NARRATIVE: CASE EVENT DATE: 20201212
